FAERS Safety Report 8481452-7 (Version None)
Quarter: 2012Q3

REPORT INFORMATION
  Report Type: 
  Country: None (occurrence: None)
  Receive Date: 20120702
  Receipt Date: 20120622
  Transmission Date: 20120928
  Serious: Yes (Other)
  Sender: FDA-Public Use
  Company Number: JP-ASTELLAS-2012JP005882

PATIENT
  Age: 14 Year
  Sex: Female

DRUGS (3)
  1. DOPAMINE HCL [Concomitant]
     Indication: BONE MARROW CONDITIONING REGIMEN
     Route: 065
  2. PROGRAF [Suspect]
     Indication: UNRELATED DONOR BONE MARROW TRANSPLANTATION THERAPY
     Route: 065
  3. AMPHOTERICIN B [Concomitant]
     Route: 065

REACTIONS (3)
  - RENAL IMPAIRMENT [None]
  - DRUG INEFFECTIVE [None]
  - ACUTE GRAFT VERSUS HOST DISEASE [None]
